FAERS Safety Report 8844596 (Version 1)
Quarter: 2012Q4

REPORT INFORMATION
  Report Type: 
  Country: IT (occurrence: IT)
  Receive Date: 20121017
  Receipt Date: 20121017
  Transmission Date: 20130627
  Serious: Yes (Hospitalization)
  Sender: FDA-Public Use
  Company Number: IT-UCBSA-068783

PATIENT
  Age: 61 Year
  Sex: Female

DRUGS (1)
  1. KEPPRA [Suspect]
     Indication: EPILEPSY
     Dosage: 500 MG, 60 FILM COATED TABLETS,2 DF
     Route: 048
     Dates: start: 20120401

REACTIONS (2)
  - Convulsion [Unknown]
  - Thrombocytopenia [Unknown]
